FAERS Safety Report 12289117 (Version 1)
Quarter: 2016Q2

REPORT INFORMATION
  Report Type: Spontaneous
  Country: US (occurrence: None)
  Receive Date: 20160420
  Receipt Date: 20160420
  Transmission Date: 20160815
  Serious: No
  Sender: FDA-Public Use
  Company Number: None

PATIENT
  Age: 44 Year
  Sex: Female

DRUGS (1)
  1. CAPECITABINE TAB 500MG [Suspect]
     Active Substance: CAPECITABINE
     Indication: BONE CANCER
     Dosage: 2000MG PO TWICE DAILY (14 DAYS ON, 7 DA
     Route: 048
     Dates: start: 20160217

REACTIONS (6)
  - Pain [None]
  - Dry mouth [None]
  - Stomatitis [None]
  - Gait disturbance [None]
  - Skin exfoliation [None]
  - Erythema [None]

NARRATIVE: CASE EVENT DATE: 20160419
